FAERS Safety Report 4888425-1 (Version None)
Quarter: 2005Q4

REPORT INFORMATION
  Report Type: 
  Country: None (occurrence: None)
  Receive Date: 20051221
  Receipt Date: 20051117
  Transmission Date: 20060501
  Serious: No
  Sender: FDA-Public Use
  Company Number: US-YAMANOUCHI-YPA20050600

PATIENT
  Age: 66 Year
  Sex: Female

DRUGS (2)
  1. VESICARE [Suspect]
     Dosage: 5 MG QD PO
     Route: 048
     Dates: start: 20051117
  2. PROSED/DS [Concomitant]

REACTIONS (2)
  - CHROMATURIA [None]
  - FATIGUE [None]
